FAERS Safety Report 24058086 (Version 3)
Quarter: 2024Q4

REPORT INFORMATION
  Report Type: Report from Study
  Country: US (occurrence: US)
  Receive Date: 20240707
  Receipt Date: 20241013
  Transmission Date: 20250114
  Serious: Yes (Other)
  Sender: ABBVIE
  Company Number: US-ABBVIE-5742665

PATIENT
  Age: 64 Year
  Sex: Male

DRUGS (2)
  1. HUMIRA [Suspect]
     Active Substance: ADALIMUMAB
     Indication: Uveitis
     Route: 058
     Dates: start: 20220401, end: 2023
  2. HUMIRA [Suspect]
     Active Substance: ADALIMUMAB
     Route: 058

REACTIONS (11)
  - Eye operation [Recovering/Resolving]
  - Knee arthroplasty [Recovering/Resolving]
  - Contusion [Unknown]
  - Psoriasis [Unknown]
  - Uveitis [Recovering/Resolving]
  - Skin atrophy [Unknown]
  - Retinal tear [Recovering/Resolving]
  - Stoma creation [Unknown]
  - Retinal scar [Recovering/Resolving]
  - Retinal detachment [Unknown]
  - Stoma site discharge [Unknown]

NARRATIVE: CASE EVENT DATE: 20220601
